FAERS Safety Report 11654833 (Version 1)
Quarter: 2015Q4

REPORT INFORMATION
  Report Type: Spontaneous
  Country: US (occurrence: None)
  Receive Date: 20151022
  Receipt Date: 20151022
  Transmission Date: 20160304
  Serious: Yes (Other)
  Sender: FDA-Public Use
  Company Number: None

PATIENT
  Age: 59 Year
  Sex: Female
  Weight: 53.98 kg

DRUGS (5)
  1. CALCIUM WITH VIT D [Concomitant]
  2. FOSAMAX [Suspect]
     Active Substance: ALENDRONATE SODIUM
     Indication: OSTEOPOROSIS
     Dosage: 1 PILL
     Route: 048
     Dates: start: 20151004
  3. OMEPRAZOLE. [Concomitant]
     Active Substance: OMEPRAZOLE
  4. LOMOTIL [Concomitant]
     Active Substance: ATROPINE SULFATE\DIPHENOXYLATE HYDROCHLORIDE
  5. MULTI VITAMIN [Concomitant]
     Active Substance: VITAMINS

REACTIONS (4)
  - Pain [None]
  - Middle insomnia [None]
  - Muscle spasms [None]
  - Decreased activity [None]

NARRATIVE: CASE EVENT DATE: 20151004
